FAERS Safety Report 10597054 (Version 1)
Quarter: 2014Q4

REPORT INFORMATION
  Report Type: Spontaneous
  Country: US (occurrence: US)
  Receive Date: 20141121
  Receipt Date: 20141121
  Transmission Date: 20150529
  Serious: Yes (Hospitalization, Other)
  Sender: FDA-Public Use
  Company Number: US-ACCORD-027068

PATIENT
  Age: 68 Year
  Sex: Female
  Weight: 61 kg

DRUGS (14)
  1. MORPHINE [Concomitant]
     Active Substance: MORPHINE
  2. DOCETAXEL. [Suspect]
     Active Substance: DOCETAXEL
     Indication: SQUAMOUS CELL CARCINOMA OF HEAD AND NECK
     Route: 041
     Dates: start: 20140723
  3. VILAZODONE [Concomitant]
     Active Substance: VILAZODONE
  4. ERLOTINIB [Suspect]
     Active Substance: ERLOTINIB
     Indication: SQUAMOUS CELL CARCINOMA OF HEAD AND NECK
     Dosage: WAS HELD FROM 9-SEP-2014 TO 13-SEP-2014 AND RESTARTED FROM 14-SEP-2014 TO 23-SEP-2014
     Route: 048
     Dates: start: 20140724, end: 20140827
  5. DURAGESIC [Concomitant]
     Active Substance: FENTANYL
     Dosage: /00174601/ (FENTANYL}  CUTANEOUS PATCH,
  6. DESYREL [Concomitant]
     Active Substance: TRAZODONE HYDROCHLORIDE
  7. XANAX [Concomitant]
     Active Substance: ALPRAZOLAM
  8. CARBOPLATIN. [Suspect]
     Active Substance: CARBOPLATIN
     Indication: SQUAMOUS CELL CARCINOMA OF HEAD AND NECK
     Dosage: AUC 6
     Route: 041
     Dates: start: 20140723
  9. CISPLATIN. [Suspect]
     Active Substance: CISPLATIN
     Indication: SQUAMOUS CELL CARCINOMA OF HEAD AND NECK
  10. NORCO [Concomitant]
     Active Substance: ACETAMINOPHEN\HYDROCODONE BITARTRATE
     Dosage: 7.5-3.25 MG
  11. ZOFRAN [Concomitant]
     Active Substance: ONDANSETRON HYDROCHLORIDE
     Dosage: /00955301/
  12. WELLBUTRIN [Concomitant]
     Active Substance: BUPROPION HYDROCHLORIDE
  13. NEUPOGEN [Concomitant]
     Active Substance: FILGRASTIM
  14. PHENERGAN [Concomitant]
     Active Substance: PROMETHAZINE HYDROCHLORIDE
     Dosage: /00033001/

REACTIONS (5)
  - Dehydration [Recovered/Resolved]
  - Diarrhoea [Unknown]
  - Hypokalaemia [Recovered/Resolved]
  - Vomiting [Unknown]
  - Nausea [Unknown]

NARRATIVE: CASE EVENT DATE: 20140907
